FAERS Safety Report 16164818 (Version 1)
Quarter: 2019Q2

REPORT INFORMATION
  Report Type: Spontaneous
  Country: CN (occurrence: CN)
  Receive Date: 20190405
  Receipt Date: 20190405
  Transmission Date: 20190711
  Serious: Yes (Other)
  Sender: FDA-Public Use
  Company Number: CN-SA-2019SA090332

PATIENT
  Age: 72 Year
  Sex: Female
  Weight: 60 kg

DRUGS (4)
  1. RALTITREXED [Suspect]
     Active Substance: RALTITREXED
     Indication: RECTAL CANCER
     Dosage: 4.00 MG, QD
     Route: 041
     Dates: start: 20190301, end: 20190301
  2. ELOXATIN [Suspect]
     Active Substance: OXALIPLATIN
     Indication: CHEMOTHERAPY
  3. RALTITREXED [Suspect]
     Active Substance: RALTITREXED
     Indication: CHEMOTHERAPY
  4. ELOXATIN [Suspect]
     Active Substance: OXALIPLATIN
     Indication: RECTAL CANCER
     Dosage: 130 MG, QD
     Route: 041
     Dates: start: 20190301, end: 20190301

REACTIONS (1)
  - Bone marrow failure [Recovering/Resolving]

NARRATIVE: CASE EVENT DATE: 20190314
